FAERS Safety Report 14302780 (Version 17)
Quarter: 2019Q2

REPORT INFORMATION
  Report Type: Report from Study
  Country: IL (occurrence: IL)
  Receive Date: 20171219
  Receipt Date: 20190627
  Transmission Date: 20190711
  Serious: Yes (Life-Threatening, Hospitalization, Other)
  Sender: FDA-Public Use
  Company Number: IL-EISAI MEDICAL RESEARCH-EC-2017-034058

PATIENT
  Age: 56 Year
  Sex: Male
  Weight: 104 kg

DRUGS (22)
  1. COLCHICINE. [Concomitant]
     Active Substance: COLCHICINE
  2. PREDNISONE. [Suspect]
     Active Substance: PREDNISONE
     Route: 048
     Dates: start: 20180505, end: 20180506
  3. PREDNISONE. [Suspect]
     Active Substance: PREDNISONE
     Route: 048
     Dates: start: 20180419, end: 20180428
  4. PREDNISONE. [Suspect]
     Active Substance: PREDNISONE
     Route: 048
     Dates: start: 20180429, end: 20180503
  5. NORMITEN [Concomitant]
     Active Substance: ATENOLOL
  6. PAPAVERINE HCL [Concomitant]
  7. LENVATINIB [Suspect]
     Active Substance: LENVATINIB
     Route: 048
     Dates: start: 20180103, end: 20180113
  8. PREDNISONE. [Suspect]
     Active Substance: PREDNISONE
     Route: 048
     Dates: start: 20180409, end: 20180409
  9. PREDNISONE. [Suspect]
     Active Substance: PREDNISONE
     Route: 048
     Dates: start: 20180416, end: 20180418
  10. ALLORIL [Concomitant]
  11. AMLODIPINE [Concomitant]
     Active Substance: AMLODIPINE BESYLATE
  12. PEMBROLIZUMAB. [Suspect]
     Active Substance: PEMBROLIZUMAB
     Indication: RENAL CELL CARCINOMA
     Route: 041
     Dates: start: 20171115, end: 20181106
  13. PREDNISONE. [Suspect]
     Active Substance: PREDNISONE
     Route: 048
     Dates: start: 20180413, end: 20180415
  14. LENVATINIB [Suspect]
     Active Substance: LENVATINIB
     Indication: RENAL CELL CARCINOMA
     Route: 048
     Dates: start: 20171115, end: 20171211
  15. LENVATINIB [Suspect]
     Active Substance: LENVATINIB
     Route: 048
     Dates: start: 20180114, end: 20181116
  16. PREDNISONE. [Suspect]
     Active Substance: PREDNISONE
     Indication: PRODUCT USED FOR UNKNOWN INDICATION
     Route: 048
     Dates: start: 20180323, end: 20180408
  17. PREDNISONE. [Suspect]
     Active Substance: PREDNISONE
     Route: 048
     Dates: start: 20180410, end: 20180412
  18. LIPITOR [Concomitant]
     Active Substance: ATORVASTATIN CALCIUM
  19. ALLORIL [Concomitant]
  20. AUGMENTIN [Concomitant]
     Active Substance: AMOXICILLIN\CLAVULANATE POTASSIUM
  21. NORMITEN [Concomitant]
     Active Substance: ATENOLOL
  22. TEVAPIRIN [Concomitant]

REACTIONS (7)
  - Lipase increased [Not Recovered/Not Resolved]
  - Aortic dissection [Recovered/Resolved]
  - Posterior reversible encephalopathy syndrome [Recovered/Resolved]
  - Steroid withdrawal syndrome [Recovered/Resolved]
  - Duodenal ulcer perforation [Recovered/Resolved]
  - Urinary retention [Recovered/Resolved]
  - Transient ischaemic attack [Recovered/Resolved]

NARRATIVE: CASE EVENT DATE: 20171211
